FAERS Safety Report 8458257-6 (Version None)
Quarter: 2012Q2

REPORT INFORMATION
  Report Type: 
  Country: None (occurrence: None)
  Receive Date: 20120615
  Receipt Date: 20120530
  Transmission Date: 20120825
  Serious: Yes (Other)
  Sender: FDA-Public Use
  Company Number: DSJ-2011-19358

PATIENT
  Sex: Male

DRUGS (7)
  1. BENICAR HCT [Suspect]
     Indication: HYPERTENSION
     Dosage: 40/25 MG (1 IN 1 D), PER ORAL
     Route: 048
     Dates: start: 20110101, end: 20120201
  2. BENICAR HCT [Suspect]
     Indication: HYPERTENSION
     Dosage: 40/25 MG (1 IN 1 D), PER ORAL
     Route: 048
     Dates: start: 20060101, end: 20110101
  3. BENICAR HCT [Suspect]
     Indication: HYPERTENSION
     Dosage: 40/25 MG (1 IN 1 D), PER ORAL
     Route: 048
     Dates: start: 20120201, end: 20120201
  4. BENICAR HCT [Suspect]
     Indication: HYPERTENSION
     Dosage: 40/25 MG (1 IN 1 D), PER ORAL
     Route: 048
     Dates: start: 20120101
  5. SIMVASTATIN [Concomitant]
  6. CILOSTAZOL [Suspect]
     Indication: PAIN IN EXTREMITY
     Dosage: 200 MG, PER ORAL
     Route: 048
     Dates: start: 20070101
  7. MEDICINE FOR HYPERGLYCAEMIA (NAME UNKNOWN) [Concomitant]

REACTIONS (6)
  - BLOOD GLUCOSE FLUCTUATION [None]
  - HYPOTENSION [None]
  - DRUG ADMINISTRATION ERROR [None]
  - SELF-MEDICATION [None]
  - HYPERGLYCAEMIA [None]
  - PAIN IN EXTREMITY [None]
